FAERS Safety Report 4987706-0 (Version None)
Quarter: 2006Q1

REPORT INFORMATION
  Report Type: 
  Country: None (occurrence: None)
  Receive Date: 20060309
  Receipt Date: 20051010
  Transmission Date: 20060701
  Serious: Yes (Other)
  Sender: FDA-Public Use
  Company Number: 378219

PATIENT

DRUGS (4)
  1. ACCUTANE [Suspect]
     Dosage: ORAL
     Route: 048
  2. ISOTRETINOIN [Suspect]
     Dosage: ORAL
     Route: 048
     Dates: start: 20040215, end: 20040823
  3. ORAL CONTRACEPTIVE PILL (ORAL CONTRACEPTIVE NOS) [Concomitant]
  4. VITAMIN (VITAMIN NOS) [Concomitant]

REACTIONS (3)
  - DRUG EXPOSURE DURING PREGNANCY [None]
  - NO ADVERSE EFFECT [None]
  - PREGNANCY [None]
